FAERS Safety Report 5936488-4 (Version None)
Quarter: 2008Q4

REPORT INFORMATION
  Report Type: 
  Country: None (occurrence: None)
  Receive Date: 20081030
  Receipt Date: 20081021
  Transmission Date: 20090506
  Serious: Yes (Other)
  Sender: FDA-Public Use
  Company Number: ES-BAXTER-2008BH011359

PATIENT
  Age: 15 Year
  Sex: Female

DRUGS (1)
  1. CEFTRIAXONE [Suspect]
     Indication: PNEUMONIA
     Dosage: DOSE UNIT:UNKNOWN
     Route: 042

REACTIONS (2)
  - ANGIOEDEMA [None]
  - URTICARIA [None]
